FAERS Safety Report 16400433 (Version 2)
Quarter: 2019Q2

REPORT INFORMATION
  Report Type: Spontaneous
  Country: JP (occurrence: JP)
  Receive Date: 20190606
  Receipt Date: 20190627
  Transmission Date: 20190711
  Serious: Yes (Other)
  Sender: FDA-Public Use
  Company Number: JP-JNJFOC-20190600041

PATIENT
  Age: 8 Decade
  Sex: Male

DRUGS (2)
  1. SIMPONI [Suspect]
     Active Substance: GOLIMUMAB
     Indication: RHEUMATOID ARTHRITIS
     Dosage: GOLIMUMAB(GENETICAL RECOMBINATION):50MG
     Route: 058
     Dates: start: 20180906, end: 2019
  2. SIMPONI [Suspect]
     Active Substance: GOLIMUMAB
     Route: 058
     Dates: start: 2019

REACTIONS (1)
  - Pelvic fracture [Recovered/Resolved]

NARRATIVE: CASE EVENT DATE: 201904
